FAERS Safety Report 13005676 (Version 2)
Quarter: 2016Q4

REPORT INFORMATION
  Report Type: Report from Study
  Country: DE (occurrence: DE)
  Receive Date: 20161207
  Receipt Date: 20161216
  Transmission Date: 20170207
  Serious: Yes (Death)
  Sender: FDA-Public Use
  Company Number: PHHY2016DE167683

PATIENT
  Age: 82 Year
  Sex: Male

DRUGS (4)
  1. FUROSEMIDE. [Concomitant]
     Active Substance: FUROSEMIDE
     Indication: CARDIAC FAILURE
     Dosage: 1 DF, QD
     Route: 065
  2. BISOPROLOL [Concomitant]
     Active Substance: BISOPROLOL
     Indication: PRODUCT USED FOR UNKNOWN INDICATION
     Dosage: 1 DF, QD
     Route: 065
     Dates: start: 20160128
  3. ENTRESTO [Suspect]
     Active Substance: SACUBITRIL\VALSARTAN
     Indication: CARDIAC FAILURE
     Dosage: 1 DF (24/26MG), BID
     Route: 065
     Dates: start: 20160127, end: 20161126
  4. AQUAPHOR [Concomitant]
     Active Substance: PETROLATUM
     Indication: CARDIAC FAILURE
     Dosage: 1 DF, QD
     Route: 065
     Dates: start: 20160128

REACTIONS (1)
  - Death [Fatal]

NARRATIVE: CASE EVENT DATE: 20161127
